FAERS Safety Report 5415889-7 (Version None)
Quarter: 2007Q3

REPORT INFORMATION
  Report Type: 
  Country: None (occurrence: None)
  Receive Date: 20070815
  Receipt Date: 20070801
  Transmission Date: 20080115
  Serious: No
  Sender: FDA-Public Use
  Company Number: US-BOEHRINGER INGELHEIM PHARMACEUTICALS, INC.-2006-BP-11838BP

PATIENT
  Sex: Female

DRUGS (5)
  1. CATAPRES-TTS-1 [Suspect]
     Indication: HYPERTENSION
     Route: 061
     Dates: start: 20060701
  2. LEVOTHYROXINE SODIUM [Concomitant]
  3. BENICAR [Concomitant]
  4. LOTREL [Concomitant]
  5. COREG [Concomitant]

REACTIONS (2)
  - APPLICATION SITE IRRITATION [None]
  - HYPOTENSION [None]
